FAERS Safety Report 8505527-9 (Version None)
Quarter: 2012Q3

REPORT INFORMATION
  Report Type: 
  Country: None (occurrence: None)
  Receive Date: 20120703
  Receipt Date: 20120627
  Transmission Date: 20120928
  Serious: Yes (Hospitalization)
  Sender: FDA-Public Use
  Company Number: WAES 1203USA01997

PATIENT
  Age: 55 Year
  Sex: Male

DRUGS (10)
  1. AMOXICILLIN [Concomitant]
  2. FUROSEMIDE [Concomitant]
  3. TAB DECADRON TABLETS (DEXAMETHASONE) [Suspect]
     Indication: MULTIPLE MYELOMA
     Dosage: 160 MG/MTH/ PO
     Route: 048
     Dates: start: 20100927, end: 20101017
  4. TAB DECADRON TABLETS (DEXAMETHASONE) [Suspect]
     Indication: MULTIPLE MYELOMA
     Dosage: 160 MG/MTH/ PO
     Route: 048
     Dates: start: 20101018, end: 20101109
  5. DOXORUBICIN HCL [Suspect]
     Indication: MULTIPLE MYELOMA
     Dosage: 64 MG/DAILY/IV
     Route: 042
     Dates: start: 20100927, end: 20101017
  6. DOXORUBICIN HCL [Suspect]
     Indication: MULTIPLE MYELOMA
     Dosage: 64 MG/DAILY/IV
     Route: 042
     Dates: start: 20101018, end: 20101109
  7. ENOXAPARIN SODIUM [Concomitant]
  8. VELCADE [Suspect]
     Indication: MULTIPLE MYELOMA
     Dosage: 2.4 MG/M[2]/DAILY/IV
     Route: 042
     Dates: start: 20100927, end: 20101017
  9. VELCADE [Suspect]
     Indication: MULTIPLE MYELOMA
     Dosage: 2.4 MG/M[2]/DAILY/IV
     Route: 042
     Dates: start: 20101018
  10. ACETAMINOPHEN [Concomitant]

REACTIONS (2)
  - DRUG INEFFECTIVE [None]
  - DIARRHOEA [None]
